FAERS Safety Report 9007832 (Version 1)
Quarter: 2013Q1

REPORT INFORMATION
  Report Type: Spontaneous
  Country: US (occurrence: US)
  Receive Date: 20130111
  Receipt Date: 20130111
  Transmission Date: 20140127
  Serious: Yes (Disabling, Other)
  Sender: FDA-Public Use
  Company Number: US-009507513-1012USA00490

PATIENT
  Age: 5 Year
  Sex: Male
  Weight: 18.59 kg

DRUGS (1)
  1. SINGULAIR [Suspect]
     Indication: ASTHMA
     Dosage: 4 MG, ONCE
     Route: 048
     Dates: start: 20091023, end: 20091230

REACTIONS (12)
  - Head injury [Unknown]
  - Vision blurred [Unknown]
  - Tourette^s disorder [Unknown]
  - Tic [Unknown]
  - Hypophagia [Unknown]
  - Ear infection [Unknown]
  - Lymphadenopathy [Unknown]
  - Poor quality sleep [Unknown]
  - Convulsion [Unknown]
  - Aggression [Unknown]
  - Agitation [Unknown]
  - Tremor [Unknown]
